FAERS Safety Report 10235811 (Version 6)
Quarter: 2015Q1

REPORT INFORMATION
  Report Type: Spontaneous
  Country: US (occurrence: US)
  Receive Date: 20140613
  Receipt Date: 20150130
  Transmission Date: 20150720
  Serious: Yes (Death, Hospitalization, Other)
  Sender: FDA-Public Use
  Company Number: US-009507513-1406USA007087

PATIENT
  Sex: Male
  Weight: 79.37 kg

DRUGS (4)
  1. JANUVIA [Suspect]
     Active Substance: SITAGLIPTIN PHOSPHATE
     Dosage: 50 MG, BID
     Route: 048
     Dates: start: 20071212, end: 20090806
  2. JANUMET [Suspect]
     Active Substance: METFORMIN HYDROCHLORIDE\SITAGLIPTIN PHOSPHATE
     Indication: TYPE 2 DIABETES MELLITUS
     Dosage: 50/1000 MG BID
     Route: 048
     Dates: start: 200804, end: 20090806
  3. BYETTA [Suspect]
     Active Substance: EXENATIDE
     Indication: TYPE 2 DIABETES MELLITUS
     Dosage: 10 MICROGRAM, QD
     Dates: start: 200908, end: 201009
  4. JANUVIA [Suspect]
     Active Substance: SITAGLIPTIN PHOSPHATE
     Indication: TYPE 2 DIABETES MELLITUS
     Dosage: 100 MG, BID
     Route: 048
     Dates: start: 20071025, end: 200804

REACTIONS (22)
  - Hepatic cancer metastatic [Unknown]
  - Acute myocardial infarction [Unknown]
  - Cholelithiasis [Unknown]
  - Coronary artery disease [Unknown]
  - Carcinoma in situ [Unknown]
  - Abscess limb [Unknown]
  - Gastritis erosive [Unknown]
  - Cardiac failure congestive [Unknown]
  - Hypertension [Unknown]
  - Shoulder operation [Unknown]
  - Cardiogenic shock [Unknown]
  - Oesophagitis [Unknown]
  - Pancreatic carcinoma [Unknown]
  - Respiratory failure [Fatal]
  - Cardiomegaly [Unknown]
  - Catheterisation cardiac [Unknown]
  - Incorrect dose administered [Unknown]
  - Hypercalcaemia [Unknown]
  - Renal failure [Unknown]
  - Cataract operation [Unknown]
  - Hepatic mass [Unknown]
  - Arthritis [Unknown]

NARRATIVE: CASE EVENT DATE: 200710
